FAERS Safety Report 8260892-5 (Version None)
Quarter: 2012Q2

REPORT INFORMATION
  Report Type: 
  Country: None (occurrence: None)
  Receive Date: 20120402
  Receipt Date: 20120319
  Transmission Date: 20120825
  Serious: Yes (Death)
  Sender: FDA-Public Use
  Company Number: UTC-016809

PATIENT
  Age: 68 Year
  Sex: Male
  Weight: 78.2 kg

DRUGS (2)
  1. TYVASO [Suspect]
     Indication: PULMONARY ARTERIAL HYPERTENSION
     Dosage: 18-90 MCG, INHALATION
     Route: 055
     Dates: start: 20100921
  2. REVATIO [Concomitant]

REACTIONS (1)
  - DEATH [None]
